FAERS Safety Report 9316948 (Version 1)
Quarter: 2013Q2

REPORT INFORMATION
  Report Type: Spontaneous
  Country: US (occurrence: None)
  Receive Date: 20130523
  Receipt Date: 20130523
  Transmission Date: 20140414
  Serious: Yes (Hospitalization)
  Sender: FDA-Public Use
  Company Number: 2013-0825

PATIENT
  Age: 51 Year
  Sex: Female
  Weight: 105 kg

DRUGS (17)
  1. CARFILZOMIB [Suspect]
     Indication: PLASMA CELL MYELOMA
     Dosage: 6.871 MG/MW (36 MG/MW, DAYS 8,9.15,16) INTRAVENOUS
     Dates: start: 20130226
  2. LENALIDOMIDE (LENALIDOMIDE) (CAPSULE (LENALIDOMIDE) [Concomitant]
  3. DEXAMETHASONE (DEXAMETHASONE) (DEXAMETHASONE) [Concomitant]
  4. PEXEVA (PAROXETINE MESILATE) (TABLET) (PAROXETINE MESILATE) [Concomitant]
  5. K-LOR (POTASSIUM CHLORIDE) (POTASSIUM CHLORIDE) [Concomitant]
  6. PREDNISONE (PREDNISONE) (PREDNISONE) [Concomitant]
  7. COMPAZINE (PROCHLORPERZINE EDISYLATE) (TABLET) (PROCHLORPERAZINE EDISYLATE) [Concomitant]
  8. ZOVIRAX (ACICLOVIR) (TABLET) (ACICLOVIR) [Concomitant]
  9. ZYLOPRIM (ALLOPURINOL) (TABLET) (ALLOPURINOL) [Concomitant]
  10. ASPIRIN (ACETYLSALICYLIC ACID ) (TABLET) (ACETYLSALICYLIC ACID) [Concomitant]
  11. DICOLFENAC SODIUM (DICLOFENAC SODIUM) (DICLOFENAC SODIUM) [Concomitant]
  12. NEXIUM (ESOMPRAZOLE MAGNESIUM) (CAPSULE) (ESOMEPRAZOLE MAGNESIUM) [Concomitant]
  13. FOLIC ACID (FOLIC ACID) (FOLIC ACID) [Concomitant]
  14. ATARAX (HYDROXZINE) (TABLET) (HYDROXZINE) [Concomitant]
  15. LEVAQUIN (LEVOFLOXACIN) (LEVOFLOXACIN) [Concomitant]
  16. MULTIVITAMIN (VITAMINS NOS) (TABLET) (VITAMINS NOS) [Concomitant]
  17. KENALOG (TRIAMCINOLONE ACETONIDE) (OINTMENT) (TRIAMCINOLONE ACETONIDE) [Concomitant]

REACTIONS (4)
  - Skin exfoliation [None]
  - Rash macular [None]
  - Rash erythematous [None]
  - Rash pruritic [None]
